FAERS Safety Report 15234886 (Version 1)
Quarter: 2018Q3

REPORT INFORMATION
  Report Type: Spontaneous
  Country: US (occurrence: US)
  Receive Date: 20180803
  Receipt Date: 20180803
  Transmission Date: 20181010
  Serious: Yes (Other)
  Sender: FDA-Public Use
  Company Number: US-ACCORD-065000

PATIENT
  Age: 59 Year
  Sex: Female

DRUGS (27)
  1. PERTUZUMAB. [Suspect]
     Active Substance: PERTUZUMAB
     Indication: BREAST CANCER
  2. GLIPIZIDE. [Concomitant]
     Active Substance: GLIPIZIDE
  3. FAMOTIDINE. [Concomitant]
     Active Substance: FAMOTIDINE
  4. GRANISETRON [Concomitant]
     Active Substance: GRANISETRON
  5. METOPROLOL. [Concomitant]
     Active Substance: METOPROLOL
  6. HERCEPTIN [Suspect]
     Active Substance: TRASTUZUMAB
     Indication: BREAST CANCER
  7. ARIMIDEX [Concomitant]
     Active Substance: ANASTROZOLE
     Dates: start: 2008
  8. GABAPENTIN. [Concomitant]
     Active Substance: GABAPENTIN
  9. LISINOPRIL. [Concomitant]
     Active Substance: LISINOPRIL
  10. DOCETAXEL ACCORD [Suspect]
     Active Substance: DOCETAXEL
     Indication: BREAST CANCER
     Dosage: DOSE: 136 EVERY 3 WEEKS
     Dates: start: 20140314, end: 20140627
  11. PARAPLATIN [Suspect]
     Active Substance: CARBOPLATIN
     Indication: BREAST CANCER
  12. GRANULOCYTE COLONY STIMULATING [Concomitant]
     Active Substance: GRANULOCYTE COLONY-STIMULATING FACTOR NOS
  13. TRAMADOL. [Concomitant]
     Active Substance: TRAMADOL
     Dates: start: 2014
  14. HEPARIN [Concomitant]
     Active Substance: HEPARIN SODIUM
     Dates: start: 2014, end: 2015
  15. DEXAMETHASONE. [Concomitant]
     Active Substance: DEXAMETHASONE
  16. FOSAPREPITANT DIMEGLUMINE. [Concomitant]
     Active Substance: FOSAPREPITANT DIMEGLUMINE
  17. HYDROCODONE BITARTRATE/PARACETAMOL [Concomitant]
  18. SALBUTAMOL [Concomitant]
     Active Substance: ALBUTEROL
     Dates: start: 2007
  19. AMLODIPINE [Concomitant]
     Active Substance: AMLODIPINE BESYLATE
     Dates: start: 2007
  20. LOVASTATIN. [Concomitant]
     Active Substance: LOVASTATIN
  21. IRON [Concomitant]
     Active Substance: IRON
     Dates: start: 2014
  22. TRASTUZUMAB. [Suspect]
     Active Substance: TRASTUZUMAB
     Indication: BREAST CANCER
  23. HYDROCHLOROTHIAZIDE. [Concomitant]
     Active Substance: HYDROCHLOROTHIAZIDE
     Dates: end: 2014
  24. COUMADIN [Concomitant]
     Active Substance: WARFARIN SODIUM
  25. VICODIN [Concomitant]
     Active Substance: ACETAMINOPHEN\HYDROCODONE BITARTRATE
     Dates: start: 2014
  26. METHYLPREDNISOLONE. [Concomitant]
     Active Substance: METHYLPREDNISOLONE
  27. WARFARIN [Concomitant]
     Active Substance: WARFARIN
     Dates: start: 2014

REACTIONS (1)
  - Alopecia [Not Recovered/Not Resolved]

NARRATIVE: CASE EVENT DATE: 2014
